FAERS Safety Report 18594684 (Version 1)
Quarter: 2020Q4

REPORT INFORMATION
  Report Type: Report from Study
  Country: CZ (occurrence: CZ)
  Receive Date: 20201209
  Receipt Date: 20201209
  Transmission Date: 20210114
  Serious: Yes (Other)
  Sender: FDA-Public Use
  Company Number: CZ-ASPEN-GLO2020CZ011574

PATIENT

DRUGS (9)
  1. RANITIDINE. [Concomitant]
     Active Substance: RANITIDINE
     Indication: PREMEDICATION
     Dosage: 50 MILLIGRAM DAILY
     Route: 040
     Dates: start: 20151125
  2. DITHIADEN [Concomitant]
     Active Substance: BISULEPIN
     Indication: PRODUCT USED FOR UNKNOWN INDICATION
     Dosage: 1 MILLIGRAM DAILY
     Route: 040
     Dates: start: 20151125
  3. NOVETRON [Concomitant]
     Indication: PROPHYLAXIS OF NAUSEA AND VOMITING
     Dosage: 8 MILLIGRAM DAILY
     Route: 048
     Dates: start: 20151125
  4. SPERSALERG [Concomitant]
     Indication: HYPERSENSITIVITY
     Dosage: DAILY DOSE: 1 DROP
     Route: 047
     Dates: start: 20160407
  5. DASSELTA [Concomitant]
     Active Substance: DESLORATADINE
     Indication: HYPERSENSITIVITY
     Dosage: 5 MG, QD
     Route: 048
     Dates: start: 20160407
  6. BUSULFAN. [Suspect]
     Active Substance: BUSULFAN
     Indication: PRODUCT USED FOR UNKNOWN INDICATION
     Dosage: UNK
     Route: 065
     Dates: start: 20170420, end: 20170426
  7. FORTECORTIN [Concomitant]
     Active Substance: DEXAMETHASONE
     Indication: PREMEDICATION
     Dosage: UNK
     Route: 048
     Dates: start: 20151125
  8. SYMBICORT [Concomitant]
     Active Substance: BUDESONIDE\FORMOTEROL FUMARATE DIHYDRATE
     Indication: ASTHMA
     Dosage: UNK
     Route: 055
  9. FLUDARABINE TEVA [Suspect]
     Active Substance: FLUDARABINE PHOSPHATE
     Indication: PRODUCT USED FOR UNKNOWN INDICATION
     Dosage: UNK
     Route: 065
     Dates: start: 20170420, end: 20170426

REACTIONS (1)
  - Pharyngitis [Unknown]

NARRATIVE: CASE EVENT DATE: 201704
